FAERS Safety Report 8579413-2 (Version None)
Quarter: 2012Q3

REPORT INFORMATION
  Report Type: 
  Country: None (occurrence: None)
  Receive Date: 20120808
  Receipt Date: 20120731
  Transmission Date: 20120928
  Serious: Yes (Death, Other)
  Sender: FDA-Public Use
  Company Number: US-MILLENNIUM PHARMACEUTICALS, INC.-2011-01777

PATIENT
  Sex: Male

DRUGS (2)
  1. CISPLATIN [Suspect]
     Indication: HEAD AND NECK CANCER
  2. VELCADE [Suspect]
     Indication: HEAD AND NECK CANCER
     Dosage: 14.2 MG, CYCLIC
     Route: 042
     Dates: start: 20090421, end: 20090522

REACTIONS (3)
  - PHARYNGEAL HAEMORRHAGE [None]
  - TRACHEAL INFLAMMATION [None]
  - DISEASE PROGRESSION [None]
